FAERS Safety Report 12254900 (Version 1)
Quarter: 2016Q2

REPORT INFORMATION
  Report Type: Spontaneous
  Country: US (occurrence: US)
  Receive Date: 20160411
  Receipt Date: 20160411
  Transmission Date: 20160815
  Serious: No
  Sender: FDA-Public Use
  Company Number: US-TEIKOKU PHARMA USA-TPU2016-00202

PATIENT
  Sex: Female
  Weight: 117.59 kg

DRUGS (4)
  1. LIDODERM [Suspect]
     Active Substance: LIDOCAINE
     Indication: ABDOMINAL PAIN
     Dosage: ONE 5% PATCH TOPICALLY ^SOMETIMES^ TO BACK, LEFT SIDE OF ABDOMEN AND FOOT
     Route: 061
     Dates: start: 200704
  2. LIDODERM [Suspect]
     Active Substance: LIDOCAINE
     Indication: BACK PAIN
  3. LIDODERM [Suspect]
     Active Substance: LIDOCAINE
     Indication: PAIN IN EXTREMITY
  4. UNSPECIFIED HEMORRHOID CREAM [Concomitant]
     Indication: PAIN

REACTIONS (1)
  - Herpes zoster [Unknown]
